FAERS Safety Report 8118052-4 (Version None)
Quarter: 2012Q1

REPORT INFORMATION
  Report Type: 
  Country: None (occurrence: None)
  Receive Date: 20120207
  Receipt Date: 20120202
  Transmission Date: 20120608
  Serious: No
  Sender: FDA-Public Use
  Company Number: US-PFIZER INC-2012029545

PATIENT
  Sex: Male
  Weight: 65.76 kg

DRUGS (2)
  1. FLECTOR [Suspect]
     Indication: BACK PAIN
     Dosage: UNK
     Dates: start: 20120201
  2. NEURONTIN [Concomitant]
     Indication: MUSCLE SPASMS
     Dosage: UNK

REACTIONS (1)
  - DRUG INEFFECTIVE [None]
